FAERS Safety Report 20507668 (Version 4)
Quarter: 2022Q4

REPORT INFORMATION
  Report Type: Report from Study
  Country: JP (occurrence: JP)
  Receive Date: 20220223
  Receipt Date: 20221213
  Transmission Date: 20230113
  Serious: Yes (Other)
  Sender: FDA-Public Use
  Company Number: JP-PFIZER INC-202200294361

PATIENT
  Age: 11 Month
  Sex: Male
  Weight: 30.3 kg

DRUGS (5)
  1. SIROLIMUS [Suspect]
     Active Substance: SIROLIMUS
     Indication: Lymphangiectasia
     Dosage: 2 MG,1 D
     Route: 048
     Dates: start: 20211125, end: 20211209
  2. SIROLIMUS [Suspect]
     Active Substance: SIROLIMUS
     Dosage: 3 MG,1 D
     Route: 048
     Dates: start: 20211210, end: 20220510
  3. SIROLIMUS [Suspect]
     Active Substance: SIROLIMUS
     Dosage: 4 MG,1 D
     Route: 048
     Dates: start: 20220511
  4. HIZENTRA [Concomitant]
     Active Substance: HUMAN IMMUNOGLOBULIN G
     Indication: Lymphangiectasia
     Dosage: UNK
     Route: 058
  5. ALBUMIN HUMAN [Concomitant]
     Active Substance: ALBUMIN HUMAN
     Indication: Lymphangiectasia
     Dosage: UNK
     Route: 065

REACTIONS (1)
  - Blood creatine phosphokinase increased [Unknown]
